FAERS Safety Report 5654427-0 (Version None)
Quarter: 2008Q1

REPORT INFORMATION
  Report Type: 
  Country: None (occurrence: None)
  Receive Date: 20080305
  Receipt Date: 20080228
  Transmission Date: 20080703
  Serious: Yes (Hospitalization, Other)
  Sender: FDA-Public Use
  Company Number: OPER20080037

PATIENT
  Age: 24 Year
  Sex: Male

DRUGS (3)
  1. OPANA ER [Suspect]
     Indication: ARTHRALGIA
     Dosage: 40 MG, 10 TABS/DAY (INTACT AND CRUSHED), ORAL, INTRA-NASAL
     Route: 048
     Dates: start: 20071006, end: 20080217
  2. VICODIN [Suspect]
     Indication: ARTHRALGIA
     Dosage: 1-2 TAB Q4-6H, PER ORAL
     Route: 048
     Dates: start: 20040101, end: 20080217
  3. ALCOHOL [Suspect]
     Dosage: TAKEN WITH OPANA ER, PER ORAL
     Route: 048
     Dates: end: 20080217

REACTIONS (15)
  - ALCOHOL USE [None]
  - BLOOD BILIRUBIN INCREASED [None]
  - BLOOD URINE PRESENT [None]
  - DEPRESSION [None]
  - DRUG ABUSE [None]
  - DRUG DEPENDENCE [None]
  - DRUG WITHDRAWAL SYNDROME [None]
  - DYSPHONIA [None]
  - HEPATOMEGALY [None]
  - HYPOTENSION [None]
  - INTENTIONAL DRUG MISUSE [None]
  - OVERDOSE [None]
  - RENAL PAIN [None]
  - SELF-MEDICATION [None]
  - THEFT [None]
